FAERS Safety Report 6702967-5 (Version None)
Quarter: 2010Q2

REPORT INFORMATION
  Report Type: 
  Country: None (occurrence: None)
  Receive Date: 20100429
  Receipt Date: 20100429
  Transmission Date: 20101027
  Serious: Yes (Hospitalization)
  Sender: FDA-Public Use
  Company Number: None

PATIENT
  Age: 78 Year
  Sex: Female
  Weight: 113.3993 kg

DRUGS (3)
  1. AMOXICILLIN [Suspect]
     Indication: DENTAL CARE
     Dosage: 1 CAPSULE 3/DAY PO
     Route: 048
     Dates: start: 20100329, end: 20100402
  2. AMOXICILLIN [Suspect]
     Indication: INFECTION PROPHYLAXIS
     Dosage: 1 CAPSULE 3/DAY PO
     Route: 048
     Dates: start: 20100329, end: 20100402
  3. SEE PREVIOUS REPORT INFO [Concomitant]

REACTIONS (9)
  - DECREASED APPETITE [None]
  - DRUG HYPERSENSITIVITY [None]
  - DYSSTASIA [None]
  - HEADACHE [None]
  - HYPERSOMNIA [None]
  - HYPOPHAGIA [None]
  - IMPAIRED SELF-CARE [None]
  - INDIFFERENCE [None]
  - MEMORY IMPAIRMENT [None]
